FAERS Safety Report 8003098-7 (Version None)
Quarter: 2011Q4

REPORT INFORMATION
  Report Type: 
  Country: None (occurrence: None)
  Receive Date: 20111222
  Receipt Date: 20111212
  Transmission Date: 20120403
  Serious: Yes (Other)
  Sender: FDA-Public Use
  Company Number: PHHY2011JP50287

PATIENT
  Age: 9 Year
  Sex: Female

DRUGS (3)
  1. CHEMOTHERAPEUTICS NOS [Concomitant]
  2. ACYCLOVIR [Concomitant]
     Indication: PROPHYLAXIS
     Route: 048
  3. GLEEVEC [Suspect]
     Indication: ACUTE LYMPHOCYTIC LEUKAEMIA
     Dosage: 240MG/ M2 /DAY
     Route: 048

REACTIONS (2)
  - HEPATITIS [None]
  - CHOLESTASIS [None]
